FAERS Safety Report 20931760 (Version 1)
Quarter: 2022Q2

REPORT INFORMATION
  Report Type: Spontaneous
  Country: US (occurrence: None)
  Receive Date: 20220607
  Receipt Date: 20220607
  Transmission Date: 20220720
  Serious: No
  Sender: FDA-Public Use
  Company Number: None

PATIENT
  Sex: Female

DRUGS (4)
  1. AMBRISENTAN [Suspect]
     Active Substance: AMBRISENTAN
     Indication: Pulmonary hypertension
     Dosage: FREQUENCY : DAILY;?
     Route: 048
  2. FUROSEMIDE [Concomitant]
     Active Substance: FUROSEMIDE
  3. TRACLEER [Concomitant]
     Active Substance: BOSENTAN
  4. BOSENTAN [Suspect]
     Active Substance: BOSENTAN

REACTIONS (3)
  - Dyspnoea [None]
  - Drug ineffective [None]
  - Product substitution issue [None]
